FAERS Safety Report 9173636 (Version 1)
Quarter: 2013Q1

REPORT INFORMATION
  Report Type: Spontaneous
  Country: GB (occurrence: None)
  Receive Date: 20130314
  Receipt Date: 20130314
  Transmission Date: 20140127
  Serious: Yes (Hospitalization)
  Sender: FDA-Public Use
  Company Number: 2013AP003467

PATIENT
  Sex: Female

DRUGS (17)
  1. RAMIPRIL (RAMIPRIL) [Suspect]
     Indication: PRODUCT USED FOR UNKNOWN INDICATION
     Dates: end: 20130108
  2. ALFACALCIDOL (ALFACALCIDOL) [Concomitant]
  3. BISOPROLOL (BISOPROLOL) [Concomitant]
  4. CINACALCET (CINACALCET) [Concomitant]
  5. CLOPIDOGREL (CLOPIDOGREL) [Concomitant]
  6. EPREX (EPOETIN ALFA) [Concomitant]
  7. HUMULIN /00646001 (INSULIN HUMAN) [Concomitant]
  8. HUMULIN S (INSULIN HUMAN) [Concomitant]
  9. LACTULOSE (LACTULOSE) [Concomitant]
  10. LEVOTHYROXINE (LEVOTHYROXINE) [Concomitant]
  11. ROSUVASTATIN (ROSUVASTATIN) [Concomitant]
  12. SALBUTAMOL (SALBUTAMOL) [Concomitant]
  13. SERETIDE (SERETIDE) [Concomitant]
  14. SEVELAMER (SEVELAMER) [Concomitant]
  15. EXTRANEAL [Suspect]
     Route: 033
  16. PHYSIONEAL [Suspect]
     Route: 033
  17. DOXYCYCLINE (DOXYCYCLINE) [Suspect]
     Dates: end: 20130108

REACTIONS (3)
  - Asthma [None]
  - Blood pressure decreased [None]
  - Lower respiratory tract infection [None]
